FAERS Safety Report 8914477 (Version 2)
Quarter: 2012Q4

REPORT INFORMATION
  Report Type: 
  Country: BE (occurrence: FR)
  Receive Date: 20121116
  Receipt Date: 20121126
  Transmission Date: 20130627
  Serious: Yes (Other)
  Sender: FDA-Public Use
  Company Number: BE-AMGEN-FRASP2012073297

PATIENT
  Age: 53 Year
  Sex: Female

DRUGS (1)
  1. MIMPARA [Suspect]
     Indication: HYPERPARATHYROIDISM SECONDARY
     Dosage: 90 mg, qd

REACTIONS (4)
  - Hyperkalaemia [Recovering/Resolving]
  - Monoparesis [Recovering/Resolving]
  - Electrocardiogram T wave amplitude increased [Recovering/Resolving]
  - Hypocalcaemia [Recovered/Resolved]
